FAERS Safety Report 9002912 (Version 1)
Quarter: 2013Q1

REPORT INFORMATION
  Report Type: Report from Study
  Country: US (occurrence: US)
  Receive Date: 20130108
  Receipt Date: 20130108
  Transmission Date: 20140127
  Serious: Yes (Hospitalization, Other)
  Sender: FDA-Public Use
  Company Number: US-ABBOTT-13P-163-1030180-00

PATIENT
  Age: 49 Year
  Sex: Male

DRUGS (8)
  1. HUMIRA [Suspect]
     Indication: ANKYLOSING SPONDYLITIS
     Dates: start: 2008
  2. LISINOPRIL [Concomitant]
     Indication: HYPERTENSION
     Dosage: 40MG DAILY
  3. CARVEDILOL [Concomitant]
     Indication: PRODUCT USED FOR UNKNOWN INDICATION
  4. NIACIN [Concomitant]
     Indication: PRODUCT USED FOR UNKNOWN INDICATION
  5. RISPERIDONE [Concomitant]
     Indication: SCHIZOPHRENIA
  6. BENZTROPINE [Concomitant]
     Indication: PRODUCT USED FOR UNKNOWN INDICATION
  7. FLUVOXAMINE [Concomitant]
     Indication: DEPRESSION
     Dosage: 100MG 2 TABS BEFORE BED
  8. HYDROCODONE [Concomitant]
     Indication: PAIN
     Dosage: 7.5MG 1/2-1 TABLET AS NEEDED

REACTIONS (7)
  - Blood pressure increased [Unknown]
  - Kidney infection [Recovering/Resolving]
  - Abdominal discomfort [Recovered/Resolved]
  - Vomiting [Recovered/Resolved]
  - Urinary incontinence [Recovering/Resolving]
  - Arthralgia [Unknown]
  - Drug dose omission [Unknown]
